FAERS Safety Report 20311040 (Version 2)
Quarter: 2022Q1

REPORT INFORMATION
  Report Type: Report from Study
  Country: US (occurrence: US)
  Receive Date: 20220107
  Receipt Date: 20220112
  Transmission Date: 20220423
  Serious: Yes (Other)
  Sender: FDA-Public Use
  Company Number: US-NOVARTISPH-NVSC2022US002113

PATIENT
  Age: 89 Year
  Sex: Male

DRUGS (1)
  1. ENTRESTO [Suspect]
     Active Substance: SACUBITRIL\VALSARTAN
     Indication: Product used for unknown indication
     Dosage: 100 MG, UNKNOWN (49/51 MG)
     Route: 048
     Dates: start: 2016

REACTIONS (2)
  - Throat cancer [Unknown]
  - Speech disorder [Unknown]

NARRATIVE: CASE EVENT DATE: 20191101
